FAERS Safety Report 22206337 (Version 1)
Quarter: 2023Q2

REPORT INFORMATION
  Report Type: Spontaneous
  Country: US (occurrence: None)
  Receive Date: 20230412
  Receipt Date: 20230412
  Transmission Date: 20230721
  Serious: Yes (Life-Threatening, Hospitalization, Disabling, Other)
  Sender: FDA-Public Use
  Company Number: None

PATIENT
  Age: 30 Year
  Sex: Male
  Weight: 67.5 kg

DRUGS (10)
  1. FINASTERIDE [Suspect]
     Active Substance: FINASTERIDE
     Indication: Androgenetic alopecia
     Dosage: FREQUENCY : DAILY;?
     Route: 048
     Dates: end: 20220731
  2. FINASTERIDE [Suspect]
     Active Substance: FINASTERIDE
     Indication: Androgenetic alopecia
     Dosage: OTHER QUANTITY : 90 TABLET(S);?FREQUENCY : DAILY;?
     Route: 048
     Dates: end: 20230118
  3. GABAPENTIN [Concomitant]
     Active Substance: GABAPENTIN
  4. FLEXERIL [Concomitant]
     Active Substance: CYCLOBENZAPRINE HYDROCHLORIDE
  5. ZINC [Concomitant]
     Active Substance: ZINC
  6. VITAMIN D [Concomitant]
     Active Substance: VITAMIN D NOS
  7. VITAMIN E [Concomitant]
     Active Substance: .ALPHA.-TOCOPHEROL
  8. OMEGA-3 ACIDS [Concomitant]
     Active Substance: OMEGA-3 FATTY ACIDS
  9. Adrenal supplement [Concomitant]
  10. MELATONIN [Concomitant]
     Active Substance: MELATONIN

REACTIONS (35)
  - Genital hypoaesthesia [None]
  - Perineal disorder [None]
  - Testicular disorder [None]
  - Erectile dysfunction [None]
  - Sexual dysfunction [None]
  - Depression [None]
  - Suicidal ideation [None]
  - Anxiety [None]
  - Musculoskeletal disorder [None]
  - Pelvic floor muscle weakness [None]
  - Urinary retention [None]
  - Functional gastrointestinal disorder [None]
  - Neuropathy peripheral [None]
  - Somatosensory evoked potentials abnormal [None]
  - Ejaculation failure [None]
  - Anorgasmia [None]
  - Loss of libido [None]
  - Brain fog [None]
  - Apathy [None]
  - Social problem [None]
  - Mania [None]
  - Feeling of despair [None]
  - Insomnia [None]
  - Post-traumatic stress disorder [None]
  - Multi-organ disorder [None]
  - General physical health deterioration [None]
  - Product communication issue [None]
  - Metabolic disorder [None]
  - Endocrine disorder [None]
  - Blood oestrogen increased [None]
  - Renal impairment [None]
  - Adrenal disorder [None]
  - Quality of life decreased [None]
  - Loss of employment [None]
  - Educational problem [None]

NARRATIVE: CASE EVENT DATE: 20220110
